FAERS Safety Report 9996625 (Version 1)
Quarter: 2014Q1

REPORT INFORMATION
  Report Type: Spontaneous
  Country: US (occurrence: None)
  Receive Date: 20140304
  Receipt Date: 20140304
  Transmission Date: 20141002
  Serious: Yes (Other)
  Sender: FDA-Public Use
  Company Number: RB-55748-2013

PATIENT
  Sex: Male

DRUGS (4)
  1. SUBOXONE [Suspect]
     Indication: DRUG DEPENDENCE
     Dosage: SUBOXONE FILM TRANSPLACENTAL
     Route: 064
     Dates: start: 20120620, end: 201302
  2. SUBUTEX 8 MG [Suspect]
     Indication: DRUG DEPENDENCE
     Route: 064
     Dates: start: 201302, end: 20130312
  3. NICOTINE (NONE) [Suspect]
     Indication: PRODUCT USED FOR UNKNOWN INDICATION
     Dosage: 7 CIGARETTES DAILY, TRANSPLACENTAL
     Route: 064
     Dates: start: 20120715, end: 2013
  4. PROGESTERONE [Suspect]
     Indication: PRODUCT USED FOR UNKNOWN INDICATION
     Dosage: MOTHER RECEIVED PROGESTERONE SHOTS WEEKLY, UNKNOWN DOSING DETAILS TRANSPLACENTAL
     Route: 064
     Dates: start: 201210, end: 201303

REACTIONS (2)
  - Foetal exposure during pregnancy [None]
  - Drug withdrawal syndrome neonatal [None]
